FAERS Safety Report 18646572 (Version 1)
Quarter: 2020Q4

REPORT INFORMATION
  Report Type: Spontaneous
  Country: GB (occurrence: GB)
  Receive Date: 20201222
  Receipt Date: 20201222
  Transmission Date: 20210114
  Serious: Yes (Other)
  Sender: FDA-Public Use
  Company Number: GB-ACCORD-211620

PATIENT
  Age: 62 Year
  Sex: Male
  Weight: 105 kg

DRUGS (6)
  1. AMLODIPINE [Concomitant]
     Active Substance: AMLODIPINE BESYLATE
  2. NOVOMIX [Concomitant]
     Active Substance: INSULIN ASPART
  3. METFORMIN [Concomitant]
     Active Substance: METFORMIN HYDROCHLORIDE
  4. ATORVASTATIN/ATORVASTATIN CALCIUM [Suspect]
     Active Substance: ATORVASTATIN CALCIUM
     Indication: TYPE 2 DIABETES MELLITUS
     Route: 048
     Dates: end: 20201101
  5. ESOMEPRAZOLE. [Concomitant]
     Active Substance: ESOMEPRAZOLE MAGNESIUM
  6. BISOPROLOL [Concomitant]
     Active Substance: BISOPROLOL

REACTIONS (10)
  - Asthenia [Recovering/Resolving]
  - Mobility decreased [Recovering/Resolving]
  - Arthralgia [Recovering/Resolving]
  - Joint stiffness [Recovering/Resolving]
  - Lethargy [Recovering/Resolving]
  - Dysstasia [Recovering/Resolving]
  - Depressed mood [Recovering/Resolving]
  - Musculoskeletal stiffness [Recovering/Resolving]
  - Off label use [Unknown]
  - Myalgia [Recovering/Resolving]
